FAERS Safety Report 16265472 (Version 1)
Quarter: 2019Q2

REPORT INFORMATION
  Report Type: Spontaneous
  Country: US (occurrence: US)
  Receive Date: 20190502
  Receipt Date: 20190502
  Transmission Date: 20190711
  Serious: No
  Sender: FDA-Public Use
  Company Number: US-SA-2019SA118919

PATIENT
  Age: 75 Year
  Sex: Female

DRUGS (8)
  1. METHYLPRED [Concomitant]
     Active Substance: METHYLPREDNISOLONE
  2. PRALUENT [Suspect]
     Active Substance: ALIROCUMAB
     Indication: TYPE IIA HYPERLIPIDAEMIA
     Dosage: 75 MG, QOW
     Route: 058
     Dates: start: 20161120
  3. ROPINIROLE. [Concomitant]
     Active Substance: ROPINIROLE
  4. CLONAZEPAM. [Concomitant]
     Active Substance: CLONAZEPAM
  5. VENLAFAXINE [Concomitant]
     Active Substance: VENLAFAXINE HYDROCHLORIDE
  6. AMLODIPINE [Concomitant]
     Active Substance: AMLODIPINE BESYLATE
  7. LOSARTAN POTASSSIUM [Concomitant]
  8. BUPROPION. [Concomitant]
     Active Substance: BUPROPION

REACTIONS (1)
  - Product dose omission [Recovered/Resolved]

NARRATIVE: CASE EVENT DATE: 2018
